FAERS Safety Report 24826856 (Version 1)
Quarter: 2025Q1

REPORT INFORMATION
  Report Type: Spontaneous
  Country: US (occurrence: US)
  Receive Date: 20250109
  Receipt Date: 20250109
  Transmission Date: 20250409
  Serious: Yes (Hospitalization, Other)
  Sender: AMGEN
  Company Number: US-AMGEN-USASP2024257109

PATIENT
  Age: 78 Year
  Sex: Female

DRUGS (1)
  1. DICLOFENAC SODIUM [Suspect]
     Active Substance: DICLOFENAC SODIUM
     Indication: Osteoarthritis
     Route: 065

REACTIONS (11)
  - Atypical haemolytic uraemic syndrome [Unknown]
  - Gastric ulcer [Unknown]
  - Urinary tract infection [Unknown]
  - Hepatic mass [Unknown]
  - Hiatus hernia [Unknown]
  - Mucosal dryness [Unknown]
  - Capillary nail refill test abnormal [Unknown]
  - Illness [Unknown]
  - Mental disorder [Unknown]
  - Hyporesponsive to stimuli [Unknown]
  - Gastrointestinal disorder [Unknown]
